FAERS Safety Report 9165595 (Version 3)
Quarter: 2013Q2

REPORT INFORMATION
  Report Type: Spontaneous
  Country: US (occurrence: US)
  Receive Date: 20130315
  Receipt Date: 20130503
  Transmission Date: 20140414
  Serious: Yes (Other)
  Sender: FDA-Public Use
  Company Number: US-JNJFOC-20130305436

PATIENT
  Age: 65 Year
  Sex: Female
  Weight: 98.88 kg

DRUGS (9)
  1. PEPCID COMPLETE BERRY [Suspect]
     Route: 048
  2. PEPCID COMPLETE BERRY [Suspect]
     Indication: DYSPEPSIA
     Dosage: SOMETIMES 1/2 TABLET
     Route: 048
     Dates: start: 20110810, end: 2012
  3. PEPCID COMPLETE [Suspect]
     Route: 048
  4. PEPCID COMPLETE [Suspect]
     Indication: DYSPEPSIA
     Dosage: STOPPED IN OCT OR NOV-2012
     Route: 048
     Dates: end: 2012
  5. POTASSIUM [Concomitant]
     Indication: MUSCLE SPASMS
     Route: 065
     Dates: start: 20080130
  6. POTASSIUM [Concomitant]
     Indication: BLOOD POTASSIUM DECREASED
     Route: 065
     Dates: start: 20080130
  7. ALLOPURINOL [Concomitant]
     Indication: HYPERTENSION
     Dosage: 20/25MG
     Route: 065
     Dates: start: 20110505
  8. ALLOPURINOL [Concomitant]
     Indication: HYPERTENSION
     Route: 065
     Dates: start: 20090124, end: 20110504
  9. ACETAMINOPHEN [Concomitant]
     Indication: HEADACHE
     Dosage: ONLY WHEN NEEDED
     Route: 065
     Dates: start: 20110505

REACTIONS (9)
  - Renal failure chronic [Recovering/Resolving]
  - Renal failure acute [Recovering/Resolving]
  - Renal cyst [Recovering/Resolving]
  - Blood calcium increased [Recovering/Resolving]
  - Blood potassium decreased [Recovering/Resolving]
  - Urinary bladder haemorrhage [Unknown]
  - Abdominal distension [Unknown]
  - Product label issue [Unknown]
  - Back pain [None]
